FAERS Safety Report 19861376 (Version 1)
Quarter: 2021Q3

REPORT INFORMATION
  Report Type: Spontaneous
  Country: FR (occurrence: FR)
  Receive Date: 20210921
  Receipt Date: 20210921
  Transmission Date: 20211014
  Serious: Yes (Other)
  Sender: FDA-Public Use
  Company Number: FR-GILEAD-2021-0548579

PATIENT
  Age: 35 Week
  Sex: Male

DRUGS (3)
  1. RITONAVIR. [Concomitant]
     Active Substance: RITONAVIR
     Indication: HIV INFECTION
     Route: 064
  2. VIREAD [Suspect]
     Active Substance: TENOFOVIR DISOPROXIL FUMARATE
     Indication: HIV INFECTION
     Route: 064
  3. DARUNAVIR [Concomitant]
     Active Substance: DARUNAVIR
     Indication: HIV INFECTION
     Route: 064

REACTIONS (7)
  - Trisomy 21 [Unknown]
  - Pulmonary hypertension [Unknown]
  - Hypoplastic left heart syndrome [Unknown]
  - Foetal exposure during pregnancy [Recovered/Resolved]
  - Atrioventricular septal defect [Unknown]
  - Coarctation of the aorta [Unknown]
  - Ventricular septal defect [Unknown]
